FAERS Safety Report 10377415 (Version 2)
Quarter: 2014Q3

REPORT INFORMATION
  Report Type: Spontaneous
  Country: JP (occurrence: JP)
  Receive Date: 20140812
  Receipt Date: 20140907
  Transmission Date: 20150326
  Serious: Yes (Death, Other)
  Sender: FDA-Public Use
  Company Number: PHHY2012JP134257

PATIENT
  Age: 75 Year
  Sex: Female

DRUGS (2)
  1. GLIVEC [Suspect]
     Active Substance: IMATINIB MESYLATE
     Indication: CHRONIC MYELOID LEUKAEMIA
     Dosage: 200 MG, UNK
  2. SPRYCEL [Suspect]
     Active Substance: DASATINIB
     Dates: start: 20101001

REACTIONS (6)
  - Death [Fatal]
  - Malignant neoplasm progression [Unknown]
  - Chronic myeloid leukaemia [Unknown]
  - Hepatic function abnormal [Unknown]
  - Condition aggravated [Unknown]
  - Blast crisis in myelogenous leukaemia [Unknown]
